FAERS Safety Report 10591780 (Version 1)
Quarter: 2014Q4

REPORT INFORMATION
  Report Type: Report from Study
  Country: US (occurrence: US)
  Receive Date: 20141118
  Receipt Date: 20141118
  Transmission Date: 20150529
  Serious: Yes (Other)
  Sender: FDA-Public Use
  Company Number: PHEH2014US023018

PATIENT
  Sex: Female

DRUGS (2)
  1. TASIGNA [Suspect]
     Active Substance: NILOTINIB
     Indication: OFF LABEL USE
  2. TASIGNA [Suspect]
     Active Substance: NILOTINIB
     Indication: GASTRIC CANCER
     Dosage: 400 MG, BID
     Route: 048

REACTIONS (5)
  - Asthenia [Unknown]
  - Localised intraabdominal fluid collection [Unknown]
  - Abdominal wall disorder [Unknown]
  - Abdominal pain [Unknown]
  - Fatigue [Unknown]
